FAERS Safety Report 15135055 (Version 1)
Quarter: 2018Q3

REPORT INFORMATION
  Report Type: Report from Study
  Country: JP (occurrence: JP)
  Receive Date: 20180712
  Receipt Date: 20180712
  Transmission Date: 20181010
  Serious: Yes (Hospitalization)
  Sender: FDA-Public Use
  Company Number: JP-BAYER-2018-132282

PATIENT
  Age: 77 Year
  Sex: Male
  Weight: 54 kg

DRUGS (8)
  1. XOFIGO [Suspect]
     Active Substance: RADIUM RA-223 DICHLORIDE
     Indication: METASTASES TO BONE
     Dosage: UNK
     Route: 042
     Dates: start: 20171208, end: 20171208
  2. DEGARELIX [Concomitant]
     Active Substance: DEGARELIX
     Indication: PROSTATE CANCER
     Dosage: DAILY DOSE 400 MG
     Route: 058
  3. LEUPRORELIN ACETATE [Concomitant]
     Active Substance: LEUPROLIDE ACETATE
     Indication: PROSTATE CANCER
     Dosage: UNK
  4. XOFIGO [Suspect]
     Active Substance: RADIUM RA-223 DICHLORIDE
     Indication: HORMONE-REFRACTORY PROSTATE CANCER
     Dosage: UNK
     Route: 042
     Dates: start: 20171110, end: 20171110
  5. DEGARELIX [Concomitant]
     Active Substance: DEGARELIX
     Indication: PROSTATE CANCER
     Dosage: DAILY DOSE 80 MG
     Route: 058
  6. PREDONINE [Concomitant]
     Active Substance: PREDNISOLONE
     Indication: PROSTATE CANCER
     Dosage: DAILY DOSE 10 MG
     Route: 048
  7. DENOSUMAB [Concomitant]
     Active Substance: DENOSUMAB
     Indication: PROSTATE CANCER
     Dosage: DAILY DOSE 120 MG
  8. LOXONIN [Concomitant]
     Active Substance: LOXOPROFEN SODIUM
     Indication: PROSTATE CANCER
     Dosage: DAILY DOSE 180 MG
     Route: 048

REACTIONS (2)
  - Anaemia [Recovering/Resolving]
  - Pain [Recovering/Resolving]

NARRATIVE: CASE EVENT DATE: 20180105
